FAERS Safety Report 12419354 (Version 1)
Quarter: 2016Q2

REPORT INFORMATION
  Report Type: Spontaneous
  Country: FR (occurrence: FR)
  Receive Date: 20160531
  Receipt Date: 20160531
  Transmission Date: 20160815
  Serious: Yes (Hospitalization)
  Sender: FDA-Public Use
  Company Number: FR-ASTRAZENECA-2016SE56130

PATIENT
  Age: 999 Month
  Sex: Male

DRUGS (9)
  1. KARDEGIC [Interacting]
     Active Substance: ASPIRIN LYSINE
     Indication: MYOCARDIAL INFARCTION
     Route: 048
     Dates: start: 201410
  2. COTAREG [Concomitant]
     Active Substance: HYDROCHLOROTHIAZIDE\VALSARTAN
     Dosage: 80 MG + 12.5 MG PER DAY
  3. NITRIDERM [Concomitant]
     Active Substance: NITROGLYCERIN
     Dosage: 10 MG EVERY 24 HOURS
  4. BRILIQUE [Interacting]
     Active Substance: TICAGRELOR
     Indication: MYOCARDIAL INFARCTION
     Dosage: 90 MG TWO TIMES A DAY
     Route: 048
     Dates: start: 201410
  5. KARDEGIC [Interacting]
     Active Substance: ASPIRIN LYSINE
     Indication: ANGIOPLASTY
     Route: 048
     Dates: start: 201410
  6. INEXIUM [Concomitant]
     Active Substance: ESOMEPRAZOLE
  7. FUROSEMIDE. [Concomitant]
     Active Substance: FUROSEMIDE
  8. BRILIQUE [Suspect]
     Active Substance: TICAGRELOR
     Indication: ANGIOPLASTY
     Dosage: 90 MG TWO TIMES A DAY
     Route: 048
     Dates: start: 201410
  9. KREDEX [Concomitant]
     Active Substance: CARVEDILOL

REACTIONS (3)
  - Epistaxis [Recovered/Resolved]
  - Anaemia [Recovered/Resolved]
  - Drug interaction [Unknown]

NARRATIVE: CASE EVENT DATE: 201512
